FAERS Safety Report 8585929-5 (Version None)
Quarter: 2012Q3

REPORT INFORMATION
  Report Type: 
  Country: None (occurrence: None)
  Receive Date: 20120810
  Receipt Date: 20120803
  Transmission Date: 20120928
  Serious: No
  Sender: FDA-Public Use
  Company Number: US-PFIZER INC-2012189423

PATIENT
  Age: 76 Year
  Sex: Male
  Weight: 73.469 kg

DRUGS (2)
  1. LIPITOR [Suspect]
     Indication: BLOOD CHOLESTEROL INCREASED
     Dosage: 20 MG, 1X/DAY
     Route: 048
     Dates: start: 20090101
  2. FLOMAX [Concomitant]
     Indication: HYPERTONIC BLADDER
     Dosage: UNK

REACTIONS (6)
  - ARTHRITIS [None]
  - LIGAMENT RUPTURE [None]
  - ARTHROPATHY [None]
  - BACK PAIN [None]
  - PAIN IN EXTREMITY [None]
  - SENSATION OF BLOOD FLOW [None]
